FAERS Safety Report 15186170 (Version 1)
Quarter: 2018Q3

REPORT INFORMATION
  Report Type: Report from Study
  Country: US (occurrence: US)
  Receive Date: 20180723
  Receipt Date: 20180723
  Transmission Date: 20181010
  Serious: Yes (Death)
  Sender: FDA-Public Use
  Company Number: US-EXELIXIS-CABO-17011717

PATIENT
  Age: 74 Year
  Sex: Male

DRUGS (8)
  1. ZOFRAN [Concomitant]
     Active Substance: ONDANSETRON HYDROCHLORIDE
  2. FENTANYL. [Concomitant]
     Active Substance: FENTANYL
  3. CABOMETYX [Suspect]
     Active Substance: CABOZANTINIB S-MALATE
     Indication: RENAL CANCER
     Dosage: 60 MG, QD
     Route: 048
     Dates: start: 20170601
  4. OXYCONTIN [Concomitant]
     Active Substance: OXYCODONE HYDROCHLORIDE
  5. CALTRATE [Concomitant]
     Active Substance: CALCIUM CARBONATE
  6. CLARITIN [Concomitant]
     Active Substance: LORATADINE
  7. SYNTHROID [Concomitant]
     Active Substance: LEVOTHYROXINE SODIUM
  8. TYLENOL WITH CODEINE [Concomitant]
     Active Substance: ACETAMINOPHEN\CODEINE PHOSPHATE

REACTIONS (1)
  - Malignant neoplasm progression [Fatal]

NARRATIVE: CASE EVENT DATE: 20171028
